FAERS Safety Report 16318967 (Version 2)
Quarter: 2019Q2

REPORT INFORMATION
  Report Type: Spontaneous
  Country: US (occurrence: US)
  Receive Date: 20190516
  Receipt Date: 20190617
  Transmission Date: 20190711
  Serious: Yes (Hospitalization, Other)
  Sender: FDA-Public Use
  Company Number: US-TERSERA THERAPEUTICS LLC-2019TRS000712

PATIENT

DRUGS (11)
  1. PRIALT [Suspect]
     Active Substance: ZICONOTIDE ACETATE
     Indication: PAIN
     Dosage: 2 MCG, QD
     Route: 037
     Dates: start: 201903
  2. PRIALT [Suspect]
     Active Substance: ZICONOTIDE ACETATE
     Dosage: CURRENT CONCENTRATION 5 MCG/ML
     Route: 037
  3. HYDROMORPHONE [Suspect]
     Active Substance: HYDROMORPHONE
     Dosage: 0.06 MG, QD
     Route: 065
  4. PRIALT [Suspect]
     Active Substance: ZICONOTIDE ACETATE
     Indication: COMPLEX REGIONAL PAIN SYNDROME
     Dosage: 1.2 MCG, QD
     Route: 037
     Dates: start: 201902
  5. HYDROMORPHONE [Suspect]
     Active Substance: HYDROMORPHONE
     Dosage: 0.12 MG, QD
     Route: 065
  6. PRIALT [Suspect]
     Active Substance: ZICONOTIDE ACETATE
     Dosage: 0.9 MCG, QD
     Route: 037
  7. PRIALT [Suspect]
     Active Substance: ZICONOTIDE ACETATE
     Indication: NEUROPATHY PERIPHERAL
     Dosage: 0.3 MCG, QH (EACH HOUR)
     Route: 037
  8. PRIALT [Suspect]
     Active Substance: ZICONOTIDE ACETATE
     Dosage: 0.6 MCG, QD
     Route: 037
  9. HYDROMORPHONE [Suspect]
     Active Substance: HYDROMORPHONE
     Indication: PRODUCT USED FOR UNKNOWN INDICATION
     Dosage: 0.4 MG, QD
     Route: 065
     Dates: start: 20190405
  10. HYDROMORPHONE [Suspect]
     Active Substance: HYDROMORPHONE
     Dosage: 0.18 MG, QD
     Route: 065
  11. HYDROMORPHONE [Suspect]
     Active Substance: HYDROMORPHONE
     Dosage: CURRENT CONCENTRATION 1MG/ML
     Route: 065

REACTIONS (5)
  - Somnolence [Unknown]
  - Acute kidney injury [Recovered/Resolved]
  - Sedation [Unknown]
  - Renal impairment [Unknown]
  - Off label use [Unknown]

NARRATIVE: CASE EVENT DATE: 20190410
